FAERS Safety Report 9494140 (Version 1)
Quarter: 2013Q3

REPORT INFORMATION
  Report Type: Spontaneous
  Country: US (occurrence: None)
  Receive Date: 20130828
  Receipt Date: 20130828
  Transmission Date: 20140515
  Serious: Yes (Other)
  Sender: FDA-Public Use
  Company Number: 2013US002310

PATIENT
  Age: 39 Year
  Sex: Female

DRUGS (3)
  1. ICLUSIG [Suspect]
     Indication: CHRONIC MYELOID LEUKAEMIA
     Route: 048
     Dates: start: 201306
  2. PERCOCET [Concomitant]
  3. DURAGESIC (FENTANYL) PATCH [Concomitant]

REACTIONS (2)
  - Skin exfoliation [None]
  - Dry skin [None]
